FAERS Safety Report 10955942 (Version 1)
Quarter: 2015Q1

REPORT INFORMATION
  Report Type: Spontaneous
  Country: US (occurrence: None)
  Receive Date: 20150324
  Receipt Date: 20150324
  Transmission Date: 20150721
  Serious: Yes (Other)
  Sender: FDA-Public Use
  Company Number: PL-AE15-000327

PATIENT
  Age: 86 Year
  Sex: Female

DRUGS (2)
  1. INSULIN [Concomitant]
     Active Substance: INSULIN NOS
  2. CHLORASEPTIC SORE THROAT CHERRY [Suspect]
     Active Substance: PHENOL
     Indication: ORAL PAIN
     Route: 048
     Dates: start: 20150206

REACTIONS (2)
  - Swollen tongue [None]
  - Obstructive airways disorder [None]

NARRATIVE: CASE EVENT DATE: 20150206
